FAERS Safety Report 5606259-7 (Version None)
Quarter: 2008Q1

REPORT INFORMATION
  Report Type: 
  Country: None (occurrence: None)
  Receive Date: 20080129
  Receipt Date: 20070403
  Transmission Date: 20080703
  Serious: No
  Sender: FDA-Public Use
  Company Number: A0645774A

PATIENT
  Age: 25 Year
  Sex: Female

DRUGS (5)
  1. WELLBUTRIN [Suspect]
     Indication: DEPRESSION
     Dosage: 150MG PER DAY
     Route: 048
  2. ATIVAN [Concomitant]
  3. TRAZODONE HCL [Concomitant]
  4. LEXAPRO [Concomitant]
  5. RISPERDAL [Concomitant]

REACTIONS (1)
  - MYOCLONUS [None]
